FAERS Safety Report 23736266 (Version 1)
Quarter: 2024Q2

REPORT INFORMATION
  Report Type: Spontaneous
  Country: US (occurrence: US)
  Receive Date: 20240412
  Receipt Date: 20240412
  Transmission Date: 20240716
  Serious: No
  Sender: FDA-Public Use
  Company Number: US-SA-SAC20240408000922

PATIENT
  Sex: Female

DRUGS (1)
  1. AUBAGIO [Suspect]
     Active Substance: TERIFLUNOMIDE
     Indication: Multiple sclerosis
     Dosage: UNK
     Route: 048

REACTIONS (6)
  - Balance disorder [Unknown]
  - Malaise [Unknown]
  - Visual impairment [Unknown]
  - Cognitive disorder [Unknown]
  - Memory impairment [Unknown]
  - Drug ineffective [Unknown]
